FAERS Safety Report 8202085-3 (Version None)
Quarter: 2012Q1

REPORT INFORMATION
  Report Type: 
  Country: None (occurrence: None)
  Receive Date: 20120312
  Receipt Date: 20120302
  Transmission Date: 20120608
  Serious: Yes (Hospitalization, Other)
  Sender: FDA-Public Use
  Company Number: US-MERCK-1203USA00212

PATIENT
  Age: 86 Year
  Sex: Female

DRUGS (1)
  1. FOSAMAX [Suspect]
     Route: 048
     Dates: start: 20070101, end: 20111211

REACTIONS (4)
  - FEMUR FRACTURE [None]
  - ARTHRITIS [None]
  - BONE DISORDER [None]
  - STRESS FRACTURE [None]
